FAERS Safety Report 8474994-1 (Version None)
Quarter: 2012Q2

REPORT INFORMATION
  Report Type: 
  Country: None (occurrence: None)
  Receive Date: 20120628
  Receipt Date: 20120620
  Transmission Date: 20120825
  Serious: Yes (Death, Hospitalization)
  Sender: FDA-Public Use
  Company Number: JP-JNJFOC-20120613353

PATIENT
  Sex: Male
  Weight: 44 kg

DRUGS (7)
  1. VELCADE [Suspect]
     Route: 058
     Dates: start: 20120419
  2. OMEPRAZOLE [Concomitant]
     Route: 065
     Dates: start: 20120501, end: 20120527
  3. DEXAMETHASONE [Suspect]
     Indication: PRODUCT USED FOR UNKNOWN INDICATION
     Route: 065
  4. VELCADE [Suspect]
     Route: 058
     Dates: start: 20120426
  5. VELCADE [Suspect]
     Indication: MULTIPLE MYELOMA
     Route: 058
     Dates: start: 20120412
  6. TRAMADOL HCL [Suspect]
     Indication: PRODUCT USED FOR UNKNOWN INDICATION
     Route: 065
  7. VELCADE [Suspect]
     Route: 058
     Dates: start: 20120405

REACTIONS (2)
  - GASTRIC ULCER [None]
  - CARDIAC FAILURE [None]
